FAERS Safety Report 8851239 (Version 1)
Quarter: 2012Q4

REPORT INFORMATION
  Report Type: 
  Country: JP (occurrence: JP)
  Receive Date: 20121019
  Receipt Date: 20121019
  Transmission Date: 20130627
  Serious: Yes (Hospitalization, Other)
  Sender: FDA-Public Use
  Company Number: JP-ASTRAZENECA-2012SE78947

PATIENT
  Sex: Male

DRUGS (1)
  1. OMEPRAL [Suspect]
     Indication: ABDOMINAL DISCOMFORT
     Route: 048
     Dates: start: 2010

REACTIONS (4)
  - Spinal compression fracture [Unknown]
  - Lumbar vertebral fracture [Unknown]
  - Gastric cancer [Unknown]
  - Bone density decreased [Unknown]
